FAERS Safety Report 5138182-9 (Version None)
Quarter: 2006Q4

REPORT INFORMATION
  Report Type: 
  Country: None (occurrence: None)
  Receive Date: 20061030
  Receipt Date: 20060906
  Transmission Date: 20070319
  Serious: Yes (Hospitalization, Other)
  Sender: FDA-Public Use
  Company Number: US-AMGEN-US192616

PATIENT
  Sex: Male
  Weight: 74 kg

DRUGS (14)
  1. AMG 706 [Suspect]
     Indication: METASTATIC NEOPLASM
     Route: 048
     Dates: start: 20060814, end: 20060904
  2. PANITUMUMAB [Suspect]
     Indication: METASTATIC NEOPLASM
     Route: 042
     Dates: start: 20060814, end: 20060814
  3. GEMCITABINE [Concomitant]
     Route: 042
     Dates: start: 20060814
  4. CISPLATIN [Concomitant]
     Route: 042
     Dates: start: 20060814
  5. ATIVAN [Concomitant]
     Route: 048
  6. VITAMIN CAP [Concomitant]
     Route: 065
  7. ZOFRAN [Concomitant]
     Route: 065
  8. PHENERGAN [Concomitant]
     Route: 065
  9. PREVACID [Concomitant]
     Route: 065
  10. DECADRON [Concomitant]
     Route: 048
  11. VITAMIN E [Concomitant]
     Route: 065
  12. ASCORBIC ACID [Concomitant]
     Route: 065
  13. HYDROCODONE [Concomitant]
     Route: 065
  14. CEPHALEXIN [Concomitant]
     Route: 065

REACTIONS (5)
  - CEREBRAL ISCHAEMIA [None]
  - CONFUSIONAL STATE [None]
  - HEADACHE [None]
  - INFECTION [None]
  - WHITE BLOOD CELL COUNT INCREASED [None]
